FAERS Safety Report 22343498 (Version 1)
Quarter: 2023Q2

REPORT INFORMATION
  Report Type: Spontaneous
  Country: ES (occurrence: ES)
  Receive Date: 20230519
  Receipt Date: 20230519
  Transmission Date: 20230722
  Serious: Yes (Other)
  Sender: FDA-Public Use
  Company Number: ES-BRISTOL-MYERS SQUIBB COMPANY-2023-070138

PATIENT
  Age: 72 Year
  Sex: Male

DRUGS (1)
  1. NIVOLUMAB [Suspect]
     Active Substance: NIVOLUMAB
     Indication: Malignant melanoma

REACTIONS (5)
  - Type 1 diabetes mellitus [Recovering/Resolving]
  - Subacute cutaneous lupus erythematosus [Unknown]
  - Vitiligo [Unknown]
  - Immune-mediated hypophysitis [Unknown]
  - Secondary adrenocortical insufficiency [Unknown]
